FAERS Safety Report 11125867 (Version 4)
Quarter: 2017Q2

REPORT INFORMATION
  Report Type: Spontaneous
  Country: JP (occurrence: JP)
  Receive Date: 20150520
  Receipt Date: 20170424
  Transmission Date: 20170829
  Serious: Yes (Hospitalization, Other)
  Sender: FDA-Public Use
  Company Number: JP-GLAXOSMITHKLINE-JP2015JPN066793

PATIENT
  Age: 48 Year
  Sex: Female
  Weight: 55 kg

DRUGS (16)
  1. SAMITREL [Suspect]
     Active Substance: ATOVAQUONE
     Indication: PNEUMOCYSTIS JIROVECII PNEUMONIA
     Dosage: UNK
     Route: 048
     Dates: start: 20140528, end: 20140624
  2. PREDONINE [Concomitant]
     Active Substance: PREDNISOLONE
     Dosage: 8 MG, UNK
  3. PREDONINE [Concomitant]
     Active Substance: PREDNISOLONE
     Dosage: 8 MG, UNK
  4. GASTER [Concomitant]
     Active Substance: FAMOTIDINE
     Dosage: UNK
  5. PREDONINE [Concomitant]
     Active Substance: PREDNISOLONE
     Dosage: 8 MG, UNK
  6. SAMITREL [Suspect]
     Active Substance: ATOVAQUONE
     Indication: ANTIFUNGAL PROPHYLAXIS
  7. PREDONINE [Concomitant]
     Active Substance: PREDNISOLONE
     Dosage: 8 MG, UNK
  8. PREDONINE [Concomitant]
     Active Substance: PREDNISOLONE
     Dosage: 50 MG, 1D
  9. PENTAMIDINE ISETIONATE [Suspect]
     Active Substance: PENTAMIDINE ISETHIONATE
     Indication: ANTIFUNGAL PROPHYLAXIS
     Dosage: 300 MG, UNK
     Route: 055
  10. PREDONINE [Concomitant]
     Active Substance: PREDNISOLONE
     Dosage: UNK
  11. PREDONINE [Concomitant]
     Active Substance: PREDNISOLONE
     Dosage: 30 MG, 1D
  12. PREDONINE [Concomitant]
     Active Substance: PREDNISOLONE
     Dosage: 70 MG, UNK
     Route: 042
  13. AMLODIPINE [Concomitant]
     Active Substance: AMLODIPINE BESYLATE
     Dosage: UNK
  14. SLOW-K [Concomitant]
     Active Substance: POTASSIUM CHLORIDE
     Dosage: UNK
  15. PREDONINE [Concomitant]
     Active Substance: PREDNISOLONE
     Dosage: 8 MG, UNK
  16. PREDONINE [Concomitant]
     Active Substance: PREDNISOLONE
     Dosage: 70 MG, UNK
     Route: 042

REACTIONS (17)
  - Dermatitis exfoliative [Unknown]
  - Glossodynia [Unknown]
  - Drug reaction with eosinophilia and systemic symptoms [Unknown]
  - Erythema [Recovered/Resolved]
  - Pyrexia [Unknown]
  - Oral pain [Unknown]
  - Conjunctival hyperaemia [Unknown]
  - Hepatic function abnormal [Recovered/Resolved]
  - Hepatic enzyme increased [Recovering/Resolving]
  - Lip pain [Unknown]
  - Oral mucosa erosion [Unknown]
  - Skin erosion [Unknown]
  - Rash [Recovering/Resolving]
  - Cytomegalovirus infection [Unknown]
  - Oropharyngeal pain [Unknown]
  - Lip erosion [Unknown]
  - Nasal ulcer [Unknown]

NARRATIVE: CASE EVENT DATE: 201406
